FAERS Safety Report 23140788 (Version 1)
Quarter: 2023Q4

REPORT INFORMATION
  Report Type: Spontaneous
  Country: US (occurrence: US)
  Receive Date: 20231103
  Receipt Date: 20231103
  Transmission Date: 20240110
  Serious: Yes (Other)
  Sender: FDA-Public Use
  Company Number: US-STRIDES ARCOLAB LIMITED-2023SP016274

PATIENT
  Age: 77 Year
  Sex: Female

DRUGS (4)
  1. AMANTADINE [Suspect]
     Active Substance: AMANTADINE
     Indication: Parkinson^s disease
     Dosage: UNK
     Route: 065
  2. AMANTADINE [Suspect]
     Active Substance: AMANTADINE
     Dosage: 100 MILLIGRAM, BID
     Route: 065
  3. AMANTADINE [Suspect]
     Active Substance: AMANTADINE
     Dosage: UNK, SLOW AMANTADINE TAPERING
     Route: 065
  4. LEVODOPA [Concomitant]
     Active Substance: LEVODOPA
     Indication: Parkinson^s disease
     Dosage: 500 MILLIGRAM PER DAY
     Route: 065

REACTIONS (4)
  - Myoclonus [Recovered/Resolved]
  - Oedema peripheral [Not Recovered/Not Resolved]
  - Dyskinesia [Unknown]
  - Disease recurrence [Unknown]
